FAERS Safety Report 21860401 (Version 1)
Quarter: 2023Q1

REPORT INFORMATION
  Report Type: Spontaneous
  Country: RU (occurrence: None)
  Receive Date: 20230113
  Receipt Date: 20230113
  Transmission Date: 20230418
  Serious: Yes (Disabling)
  Sender: FDA-Public Use
  Company Number: None

PATIENT
  Age: 42 Year
  Sex: Male
  Weight: 100 kg

DRUGS (1)
  1. SOMATROPIN [Suspect]
     Active Substance: SOMATROPIN
     Indication: Steroid therapy
     Dosage: OTHER QUANTITY : 111 VIALS;?
     Route: 030
     Dates: start: 20221230, end: 20230112

REACTIONS (2)
  - Self-medication [None]
  - Unevaluable event [None]

NARRATIVE: CASE EVENT DATE: 20230110
